FAERS Safety Report 23787428 (Version 1)
Quarter: 2024Q2

REPORT INFORMATION
  Report Type: Other
  Country: FR (occurrence: FR)
  Receive Date: 20240426
  Receipt Date: 20240426
  Transmission Date: 20240716
  Serious: Yes (Other)
  Sender: FDA-Public Use
  Company Number: None

PATIENT
  Age: 39 Year
  Sex: Female
  Weight: 73 kg

DRUGS (2)
  1. VISIPAQUE [Interacting]
     Active Substance: IODIXANOL
     Indication: Transcatheter arterial chemoembolisation
     Dosage: 130 ML, TOTAL
     Route: 042
     Dates: start: 20220429, end: 20220429
  2. LIPIODOL ULTRA-FLUIDE [Interacting]
     Active Substance: ETHIODIZED OIL
     Indication: Transcatheter arterial chemoembolisation
     Dosage: 3 ML, TOTAL
     Route: 042
     Dates: start: 20220429, end: 20220429

REACTIONS (3)
  - Iodine overload [Recovering/Resolving]
  - Drug interaction [Recovering/Resolving]
  - Hyperthyroidism [Recovering/Resolving]
